FAERS Safety Report 7931268-2 (Version None)
Quarter: 2011Q4

REPORT INFORMATION
  Report Type: 
  Country: None (occurrence: None)
  Receive Date: 20111121
  Receipt Date: 20111115
  Transmission Date: 20120403
  Serious: Yes (Other)
  Sender: FDA-Public Use
  Company Number: CHPA2011US016153

PATIENT
  Age: 44 Year
  Sex: Male

DRUGS (2)
  1. LEVAQUIN [Concomitant]
     Indication: PNEUMONIA
     Dosage: UNK
     Dates: start: 20111030, end: 20111101
  2. NICOTINE [Suspect]
     Indication: SMOKING CESSATION THERAPY
     Dosage: 21 MG, QD
     Route: 062
     Dates: start: 20111030, end: 20111114

REACTIONS (6)
  - APPLICATION SITE RASH [None]
  - APPLICATION SITE PAIN [None]
  - CONCOMITANT DISEASE AGGRAVATED [None]
  - APPLICATION SITE ERYTHEMA [None]
  - IRRITABILITY [None]
  - BLOOD GLUCOSE INCREASED [None]
